FAERS Safety Report 5192795-7 (Version None)
Quarter: 2006Q4

REPORT INFORMATION
  Report Type: 
  Country: None (occurrence: None)
  Receive Date: 20061228
  Receipt Date: 20051101
  Transmission Date: 20070319
  Serious: No
  Sender: FDA-Public Use
  Company Number: US-GLAXOSMITHKLINE-A0580502A

PATIENT
  Sex: Male

DRUGS (3)
  1. FLONASE [Suspect]
     Dosage: 50MCG PER DAY
     Route: 045
  2. RHINOCORT [Concomitant]
  3. OINTMENT [Concomitant]
     Route: 061

REACTIONS (5)
  - COLD SWEAT [None]
  - DIZZINESS [None]
  - DYSPNOEA [None]
  - HYPERHIDROSIS [None]
  - TREMOR [None]
